FAERS Safety Report 5676891-3 (Version None)
Quarter: 2008Q1

REPORT INFORMATION
  Report Type: 
  Country: None (occurrence: None)
  Receive Date: 20080324
  Receipt Date: 20080317
  Transmission Date: 20080703
  Serious: Yes (Other)
  Sender: FDA-Public Use
  Company Number: CA-MERCK-0803CAN00065

PATIENT
  Age: 56 Year
  Sex: Female

DRUGS (8)
  1. MAXALT [Suspect]
     Route: 048
  2. LYRICA [Suspect]
     Route: 048
  3. RIVOTRIL [Concomitant]
     Route: 065
  4. M-ESLON [Concomitant]
     Route: 065
  5. SYNTHROID [Concomitant]
     Route: 065
  6. ELAVIL [Concomitant]
     Route: 065
  7. PROVERA [Concomitant]
     Route: 065
  8. PREMARIN [Concomitant]
     Route: 065

REACTIONS (2)
  - APHASIA [None]
  - DYSPHEMIA [None]
